FAERS Safety Report 4818298-4 (Version None)
Quarter: 2005Q4

REPORT INFORMATION
  Report Type: 
  Country: None (occurrence: None)
  Receive Date: 20051102
  Receipt Date: 20051021
  Transmission Date: 20060501
  Serious: Yes (Hospitalization)
  Sender: FDA-Public Use
  Company Number: RO-BRISTOL-MYERS SQUIBB COMPANY-13162789

PATIENT
  Age: 16 Year
  Sex: Male

DRUGS (3)
  1. REYATAZ [Suspect]
     Indication: HIV INFECTION
     Route: 048
     Dates: start: 20050910
  2. NORVIR [Suspect]
     Indication: HIV INFECTION
     Route: 048
     Dates: start: 20050910
  3. COMBIVIR [Suspect]
     Indication: HIV INFECTION
     Dosage: ^300 MG/ 300 MG^ DAILY
     Route: 048
     Dates: start: 20050910

REACTIONS (3)
  - EPISTAXIS [None]
  - FATIGUE [None]
  - HAEMATEMESIS [None]
